FAERS Safety Report 12738256 (Version 1)
Quarter: 2016Q3

REPORT INFORMATION
  Report Type: Report from Study
  Country: US (occurrence: US)
  Receive Date: 20160913
  Receipt Date: 20160913
  Transmission Date: 20161109
  Serious: Yes (Death, Hospitalization)
  Sender: FDA-Public Use
  Company Number: US-ACTELION-A-NJ2016-137425

PATIENT
  Age: 87 Year
  Sex: Female

DRUGS (3)
  1. UPTRAVI [Suspect]
     Active Substance: SELEXIPAG
     Dosage: 400 MCG, BID
     Route: 048
     Dates: start: 20160511
  2. REVATIO [Concomitant]
     Active Substance: SILDENAFIL CITRATE
  3. UPTRAVI [Suspect]
     Active Substance: SELEXIPAG
     Indication: PULMONARY HYPERTENSION
     Dosage: 200 MCG, BID
     Route: 048
     Dates: start: 20160511

REACTIONS (14)
  - Death [Fatal]
  - Fluid retention [Unknown]
  - Pollakiuria [Unknown]
  - Sleep disorder [Recovering/Resolving]
  - Abdominal pain upper [Unknown]
  - Blood sodium increased [Unknown]
  - Peripheral swelling [Unknown]
  - Back pain [Unknown]
  - Cough [Unknown]
  - Wheezing [Unknown]
  - Decreased appetite [Recovering/Resolving]
  - Lethargy [Unknown]
  - Pleural effusion [Unknown]
  - Diarrhoea [Unknown]

NARRATIVE: CASE EVENT DATE: 20160810
